FAERS Safety Report 9786576 (Version 2)
Quarter: 2016Q2

REPORT INFORMATION
  Report Type: Spontaneous
  Country: US (occurrence: US)
  Receive Date: 20131227
  Receipt Date: 20160627
  Transmission Date: 20160815
  Serious: Yes (Other)
  Sender: FDA-Public Use
  Company Number: US-009507513-1312USA008240

PATIENT
  Sex: Female
  Weight: 102.4 kg

DRUGS (2)
  1. TRAZODONE HYDROCHLORIDE. [Suspect]
     Active Substance: TRAZODONE HYDROCHLORIDE
     Indication: AFFECTIVE DISORDER
  2. NEXPLANON [Suspect]
     Active Substance: ETONOGESTREL
     Indication: CONTRACEPTION
     Dosage: UNK
     Dates: start: 20130506

REACTIONS (3)
  - Abortion spontaneous [Unknown]
  - Unintended pregnancy [Unknown]
  - Implant site pain [Unknown]

NARRATIVE: CASE EVENT DATE: 201312
